FAERS Safety Report 20165918 (Version 1)
Quarter: 2021Q4

REPORT INFORMATION
  Report Type: Spontaneous
  Country: US (occurrence: None)
  Receive Date: 20211208
  Receipt Date: 20211208
  Transmission Date: 20220303
  Serious: No
  Sender: FDA-Public Use
  Company Number: None

PATIENT
  Age: 65 Year
  Sex: Female
  Weight: 67.5 kg

DRUGS (1)
  1. CLONAZEPAM [Suspect]
     Active Substance: CLONAZEPAM
     Indication: Muscle spasticity
     Dosage: FREQUENCY : TWICE A DAY;?
     Route: 048
     Dates: start: 20211105, end: 20211207

REACTIONS (3)
  - Drug ineffective [None]
  - Product quality issue [None]
  - Illness [None]

NARRATIVE: CASE EVENT DATE: 20211105
